FAERS Safety Report 7474377-7 (Version None)
Quarter: 2011Q2

REPORT INFORMATION
  Report Type: 
  Country: None (occurrence: None)
  Receive Date: 20110511
  Receipt Date: 20110508
  Transmission Date: 20111010
  Serious: Yes (Other)
  Sender: FDA-Public Use
  Company Number: JP-AMGEN-JPNSP2011023790

PATIENT
  Sex: Female

DRUGS (1)
  1. ENBREL [Suspect]
     Indication: RHEUMATOID ARTHRITIS
     Dosage: UNK
     Route: 058

REACTIONS (8)
  - DYSPHONIA [None]
  - FATIGUE [None]
  - ASTHENIA [None]
  - TREMOR [None]
  - LISTLESS [None]
  - DECREASED APPETITE [None]
  - HYPERHIDROSIS [None]
  - DIZZINESS [None]
